FAERS Safety Report 7585736-6 (Version None)
Quarter: 2011Q2

REPORT INFORMATION
  Report Type: 
  Country: None (occurrence: None)
  Receive Date: 20110629
  Receipt Date: 20110629
  Transmission Date: 20111010
  Serious: No
  Sender: FDA-Public Use
  Company Number: None

PATIENT
  Age: 37 Year
  Sex: Male
  Weight: 98.2 kg

DRUGS (7)
  1. SINGULAIR [Concomitant]
  2. DULERA TABLET [Concomitant]
  3. OMEPRAZOLE [Concomitant]
  4. STATIN [Concomitant]
  5. XOLAIR [Suspect]
     Indication: ASTHMA
     Dosage: 300MG Q 4 WEEKS SQ
     Route: 058
     Dates: start: 20110520
  6. XOLAIR [Suspect]
     Indication: ASTHMA
     Dosage: 300MG Q 4 WEEKS SQ
     Route: 058
     Dates: start: 20110425
  7. INSULIN [Concomitant]

REACTIONS (5)
  - PARAESTHESIA ORAL [None]
  - GENERALISED ERYTHEMA [None]
  - PRURITUS [None]
  - FLUSHING [None]
  - ANXIETY [None]
